FAERS Safety Report 8041133-0 (Version None)
Quarter: 2012Q1

REPORT INFORMATION
  Report Type: 
  Country: None (occurrence: None)
  Receive Date: 20120112
  Receipt Date: 20120105
  Transmission Date: 20120608
  Serious: Yes (Other)
  Sender: FDA-Public Use
  Company Number: US-AMGEN-USASP2012000714

PATIENT
  Age: 78 Year
  Sex: Female

DRUGS (1)
  1. ARANESP [Suspect]
     Indication: RENAL FAILURE CHRONIC

REACTIONS (6)
  - METASTASES TO LIVER [None]
  - METASTASES TO LUNG [None]
  - MALAISE [None]
  - BREAST CANCER RECURRENT [None]
  - BREAST CANCER METASTATIC [None]
  - METASTASES TO BONE [None]
